FAERS Safety Report 25454530 (Version 1)
Quarter: 2025Q2

REPORT INFORMATION
  Report Type: Spontaneous
  Country: ES (occurrence: ES)
  Receive Date: 20250619
  Receipt Date: 20250619
  Transmission Date: 20250717
  Serious: Yes (Hospitalization)
  Sender: AUROBINDO
  Company Number: ES-ROCHE-3354383

PATIENT
  Age: 73 Year
  Sex: Female
  Weight: 50 kg

DRUGS (51)
  1. OXALIPLATIN [Suspect]
     Active Substance: OXALIPLATIN
     Indication: Colorectal cancer
     Route: 042
     Dates: start: 20221115, end: 20221115
  2. OXALIPLATIN [Suspect]
     Active Substance: OXALIPLATIN
     Route: 042
     Dates: start: 20221221, end: 20221221
  3. OXALIPLATIN [Suspect]
     Active Substance: OXALIPLATIN
     Route: 042
     Dates: start: 20230110
  4. OXALIPLATIN [Suspect]
     Active Substance: OXALIPLATIN
     Route: 042
     Dates: start: 20230124, end: 20230124
  5. OXALIPLATIN [Suspect]
     Active Substance: OXALIPLATIN
     Route: 042
     Dates: start: 20230228, end: 20230228
  6. OXALIPLATIN [Suspect]
     Active Substance: OXALIPLATIN
     Route: 042
     Dates: start: 20230314, end: 20230314
  7. OXALIPLATIN [Suspect]
     Active Substance: OXALIPLATIN
     Route: 042
     Dates: start: 20230328, end: 20230328
  8. OXALIPLATIN [Suspect]
     Active Substance: OXALIPLATIN
     Route: 042
     Dates: start: 20230411, end: 20230411
  9. BEVACIZUMAB [Suspect]
     Active Substance: BEVACIZUMAB
     Indication: Colorectal cancer
     Route: 042
     Dates: start: 20230328, end: 20230328
  10. BEVACIZUMAB [Suspect]
     Active Substance: BEVACIZUMAB
     Route: 042
     Dates: start: 20230124, end: 20230124
  11. BEVACIZUMAB [Suspect]
     Active Substance: BEVACIZUMAB
     Route: 042
     Dates: start: 20230110
  12. BEVACIZUMAB [Suspect]
     Active Substance: BEVACIZUMAB
     Route: 042
     Dates: start: 20221221, end: 20221221
  13. BEVACIZUMAB [Suspect]
     Active Substance: BEVACIZUMAB
     Route: 042
     Dates: start: 20221115, end: 20221115
  14. BEVACIZUMAB [Suspect]
     Active Substance: BEVACIZUMAB
     Route: 042
     Dates: start: 20230228, end: 20230228
  15. BEVACIZUMAB [Suspect]
     Active Substance: BEVACIZUMAB
     Route: 042
     Dates: start: 20230411, end: 20230411
  16. BEVACIZUMAB [Suspect]
     Active Substance: BEVACIZUMAB
     Route: 042
     Dates: start: 20230314, end: 20230314
  17. ETRUMADENANT [Suspect]
     Active Substance: ETRUMADENANT
     Indication: Colorectal cancer
     Route: 048
     Dates: start: 20221115, end: 20230115
  18. ETRUMADENANT [Suspect]
     Active Substance: ETRUMADENANT
     Route: 048
     Dates: start: 20230110, end: 20230206
  19. ETRUMADENANT [Suspect]
     Active Substance: ETRUMADENANT
     Route: 048
     Dates: start: 20230228, end: 20230228
  20. LEUCOVORIN [Suspect]
     Active Substance: LEUCOVORIN\LEUCOVORIN CALCIUM
     Indication: Colorectal cancer
     Route: 042
     Dates: start: 20230314, end: 20230314
  21. LEUCOVORIN [Suspect]
     Active Substance: LEUCOVORIN\LEUCOVORIN CALCIUM
     Route: 042
     Dates: start: 20230328, end: 20230328
  22. LEUCOVORIN [Suspect]
     Active Substance: LEUCOVORIN\LEUCOVORIN CALCIUM
     Route: 042
     Dates: start: 20230411, end: 20230411
  23. LEUCOVORIN [Suspect]
     Active Substance: LEUCOVORIN\LEUCOVORIN CALCIUM
     Route: 042
     Dates: start: 20230110, end: 20230110
  24. LEUCOVORIN [Suspect]
     Active Substance: LEUCOVORIN\LEUCOVORIN CALCIUM
     Route: 042
     Dates: start: 20230124, end: 20230124
  25. LEUCOVORIN [Suspect]
     Active Substance: LEUCOVORIN\LEUCOVORIN CALCIUM
     Route: 042
     Dates: start: 20221221, end: 20221221
  26. LEUCOVORIN [Suspect]
     Active Substance: LEUCOVORIN\LEUCOVORIN CALCIUM
     Route: 042
     Dates: start: 20221115, end: 20221115
  27. LEUCOVORIN [Suspect]
     Active Substance: LEUCOVORIN\LEUCOVORIN CALCIUM
     Route: 042
     Dates: start: 20230228, end: 20230228
  28. ZIMBERELIMAB [Suspect]
     Active Substance: ZIMBERELIMAB
     Indication: Colorectal cancer
     Route: 042
     Dates: start: 20221115, end: 20221115
  29. ZIMBERELIMAB [Suspect]
     Active Substance: ZIMBERELIMAB
     Route: 042
     Dates: start: 20230110, end: 20230110
  30. ZIMBERELIMAB [Suspect]
     Active Substance: ZIMBERELIMAB
     Route: 042
     Dates: start: 20230124, end: 20230124
  31. ZIMBERELIMAB [Suspect]
     Active Substance: ZIMBERELIMAB
     Route: 042
     Dates: start: 20230228, end: 20230228
  32. ZIMBERELIMAB [Suspect]
     Active Substance: ZIMBERELIMAB
     Route: 042
     Dates: start: 20230314, end: 20230314
  33. ZIMBERELIMAB [Suspect]
     Active Substance: ZIMBERELIMAB
     Route: 042
     Dates: start: 20230328, end: 20230328
  34. ZIMBERELIMAB [Suspect]
     Active Substance: ZIMBERELIMAB
     Route: 042
     Dates: start: 20230411
  35. FLUOROURACIL [Suspect]
     Active Substance: FLUOROURACIL
     Indication: Colorectal cancer
     Route: 042
     Dates: start: 20221115, end: 20221115
  36. FLUOROURACIL [Suspect]
     Active Substance: FLUOROURACIL
     Route: 042
     Dates: start: 20221221, end: 20221221
  37. FLUOROURACIL [Suspect]
     Active Substance: FLUOROURACIL
     Route: 042
     Dates: start: 20230328, end: 20230328
  38. FLUOROURACIL [Suspect]
     Active Substance: FLUOROURACIL
     Route: 042
     Dates: start: 20230228
  39. FLUOROURACIL [Suspect]
     Active Substance: FLUOROURACIL
     Route: 042
     Dates: start: 20230110, end: 20230110
  40. FLUOROURACIL [Suspect]
     Active Substance: FLUOROURACIL
     Route: 042
     Dates: start: 20221115, end: 20221115
  41. FLUOROURACIL [Suspect]
     Active Substance: FLUOROURACIL
     Route: 042
     Dates: start: 20230110, end: 20230110
  42. FLUOROURACIL [Suspect]
     Active Substance: FLUOROURACIL
     Route: 042
     Dates: start: 20230314
  43. FLUOROURACIL [Suspect]
     Active Substance: FLUOROURACIL
     Route: 042
     Dates: start: 20230411, end: 20230411
  44. FLUOROURACIL [Suspect]
     Active Substance: FLUOROURACIL
     Route: 042
     Dates: start: 20230411, end: 20230411
  45. FLUOROURACIL [Suspect]
     Active Substance: FLUOROURACIL
     Route: 042
     Dates: start: 20230124, end: 20230124
  46. FLUOROURACIL [Suspect]
     Active Substance: FLUOROURACIL
     Route: 042
     Dates: start: 20221221, end: 20221221
  47. FLUOROURACIL [Suspect]
     Active Substance: FLUOROURACIL
     Route: 042
     Dates: start: 20230314, end: 20230314
  48. FLUOROURACIL [Suspect]
     Active Substance: FLUOROURACIL
     Route: 042
     Dates: start: 20230314, end: 20230314
  49. FLUOROURACIL [Suspect]
     Active Substance: FLUOROURACIL
     Route: 042
     Dates: start: 20230124, end: 20230124
  50. FLUOROURACIL [Suspect]
     Active Substance: FLUOROURACIL
     Route: 042
     Dates: start: 20230228
  51. FLUOROURACIL [Suspect]
     Active Substance: FLUOROURACIL
     Route: 042
     Dates: start: 20230328, end: 20230328

REACTIONS (2)
  - Diarrhoea [Recovered/Resolved]
  - Respiratory syncytial virus infection [Recovered/Resolved]

NARRATIVE: CASE EVENT DATE: 20221117
